FAERS Safety Report 5571306-8 (Version None)
Quarter: 2007Q4

REPORT INFORMATION
  Report Type: 
  Country: None (occurrence: None)
  Receive Date: 20071221
  Receipt Date: 20070605
  Transmission Date: 20080405
  Serious: No
  Sender: FDA-Public Use
  Company Number: A0654259A

PATIENT
  Age: 42 Year
  Sex: Female

DRUGS (6)
  1. FLONASE [Suspect]
     Dosage: 50MCG TWICE PER DAY
     Route: 045
     Dates: start: 20070521
  2. SINGULAIR [Concomitant]
  3. DURADRIN [Concomitant]
  4. MOTRIN [Concomitant]
  5. AMBIEN [Concomitant]
  6. VITAMINS [Concomitant]

REACTIONS (2)
  - COUGH [None]
  - HEADACHE [None]
